FAERS Safety Report 14660172 (Version 2)
Quarter: 2018Q3

REPORT INFORMATION
  Report Type: Not Available
  Country: GB (occurrence: GB)
  Receive Date: 20180320
  Receipt Date: 20180723
  Transmission Date: 20181010
  Serious: Yes (Disabling, Other)
  Sender: FDA-Public Use
  Company Number: GB-SYNTHON BV-NL01PV18_46792

PATIENT
  Age: 66 Year
  Sex: Male
  Weight: 63.5 kg

DRUGS (1)
  1. TAMSULOSIN [Suspect]
     Active Substance: TAMSULOSIN
     Indication: PROSTATOMEGALY
     Dosage: UNK
     Route: 048
     Dates: start: 20000705, end: 20120120

REACTIONS (4)
  - Macular fibrosis [Unknown]
  - Eye pain [Recovered/Resolved with Sequelae]
  - Visual impairment [Not Recovered/Not Resolved]
  - Cataract [Unknown]
